FAERS Safety Report 25921112 (Version 3)
Quarter: 2025Q4

REPORT INFORMATION
  Report Type: Spontaneous
  Country: EU (occurrence: EU)
  Receive Date: 20251014
  Receipt Date: 20251224
  Transmission Date: 20260117
  Serious: Yes (Death, Hospitalization)
  Sender: AIRGAS
  Company Number: EU-ALSI-2025000275

PATIENT
  Age: 68 Year
  Sex: Female

DRUGS (1)
  1. OXYGEN [Suspect]
     Active Substance: OXYGEN
     Indication: Accidental exposure to product packaging

REACTIONS (2)
  - Multiple fractures [Fatal]
  - Haemorrhage [Fatal]
